FAERS Safety Report 9853063 (Version 1)
Quarter: 2014Q1

REPORT INFORMATION
  Report Type: Spontaneous
  Country: IN (occurrence: None)
  Receive Date: 20140127
  Receipt Date: 20140127
  Transmission Date: 20141002
  Serious: Yes (Other)
  Sender: FDA-Public Use
  Company Number: ANTARES-2014-00006

PATIENT
  Age: 53 Year
  Sex: 0

DRUGS (3)
  1. METHOTREXATE [Suspect]
     Indication: PSORIASIS
  2. CYCLOSPORINE [Suspect]
     Indication: PSORIASIS
     Dosage: 200 DF, QWK
  3. FOLATE [Concomitant]

REACTIONS (4)
  - Hyperkalaemia [None]
  - Hypertension [None]
  - Hepatic enzyme increased [None]
  - Blood creatinine increased [None]
